FAERS Safety Report 24780780 (Version 1)
Quarter: 2024Q4

REPORT INFORMATION
  Report Type: Spontaneous
  Country: US (occurrence: US)
  Receive Date: 20241227
  Receipt Date: 20241227
  Transmission Date: 20250115
  Serious: Yes (Death)
  Sender: AMGEN
  Company Number: US-AMGEN-USASP2024252028

PATIENT

DRUGS (20)
  1. PREDNISONE [Suspect]
     Active Substance: PREDNISONE
     Indication: Acute lymphocytic leukaemia
     Dosage: UNK (MAINTENANCE THERAPY FOR APPROXIMATELY 30 MONTHS)
     Route: 065
  2. CYCLOPHOSPHAMIDE [Concomitant]
     Active Substance: CYCLOPHOSPHAMIDE
     Indication: Acute lymphocytic leukaemia
     Dosage: UNK (4 COURSES)
  3. CYCLOPHOSPHAMIDE [Concomitant]
     Active Substance: CYCLOPHOSPHAMIDE
     Dosage: UNK (INTENSIFICATIONS MONTHS 6, 7 AND 18, 19)
  4. VINCRISTINE [Concomitant]
     Active Substance: VINCRISTINE
     Indication: Acute lymphocytic leukaemia
     Dosage: UNK (4 COURSES)
  5. VINCRISTINE [Concomitant]
     Active Substance: VINCRISTINE
     Dosage: UNK (MAINTENANCE THERAPY FOR APPROXIMATELY 30 MONTHS)
  6. VINCRISTINE [Concomitant]
     Active Substance: VINCRISTINE
     Dosage: UNK (INTENSIFICATIONS MONTHS 6, 7 AND 18, 19)
  7. DOXORUBICIN [Concomitant]
     Active Substance: DOXORUBICIN
     Indication: Acute lymphocytic leukaemia
     Dosage: UNK (4 COURSES)
  8. DOXORUBICIN [Concomitant]
     Active Substance: DOXORUBICIN
     Dosage: UNK (INTENSIFICATIONS MONTHS 6, 7 AND 18, 19)
  9. DEXAMETHASONE [Concomitant]
     Active Substance: DEXAMETHASONE
     Indication: Acute lymphocytic leukaemia
     Dosage: UNK (4 COURSES)
  10. DEXAMETHASONE [Concomitant]
     Active Substance: DEXAMETHASONE
     Dosage: UNK (INTENSIFICATIONS MONTHS 6, 7 AND 18, 19)
  11. OFATUMUMAB [Concomitant]
     Active Substance: OFATUMUMAB
     Indication: Acute lymphocytic leukaemia
     Dosage: UNK (WAS GIVEN ON COURSES 1 AND 3)
  12. OFATUMUMAB [Concomitant]
     Active Substance: OFATUMUMAB
     Dosage: UNK (WAS GIVEN ON COURSES 2 AND 4)
     Route: 065
  13. OFATUMUMAB [Concomitant]
     Active Substance: OFATUMUMAB
     Dosage: UNK (INTENSIFICATIONS MONTHS 6, 7 AND 18, 19)
  14. METHOTREXATE [Concomitant]
     Active Substance: METHOTREXATE
     Indication: Acute lymphocytic leukaemia
     Dosage: UNK (4 COURSES)
  15. METHOTREXATE [Concomitant]
     Active Substance: METHOTREXATE
     Indication: Prophylaxis
     Dosage: UNK (MAINTENANCE THERAPY FOR APPROXIMATELY 30 MONTHS)
  16. METHOTREXATE [Concomitant]
     Active Substance: METHOTREXATE
     Dosage: UNK (INTENSIFICATIONS MONTHS 6, 7 AND 18, 19)
  17. CYTARABINE [Concomitant]
     Active Substance: CYTARABINE
     Indication: Acute lymphocytic leukaemia
     Dosage: UNK (4 COURSES)
  18. CYTARABINE [Concomitant]
     Active Substance: CYTARABINE
     Indication: Prophylaxis
  19. MERCAPTOPURINE [Concomitant]
     Active Substance: MERCAPTOPURINE
     Indication: Acute lymphocytic leukaemia
     Dosage: UNK (MAINTENANCE THERAPY FOR APPROXIMATELY 30 MONTHS)
  20. PEG/L-ASPARAGINASE [Concomitant]
     Active Substance: PEGASPARGASE
     Indication: Acute lymphocytic leukaemia
     Dosage: UNK (INTENSIFICATIONS MONTHS 6, 7 AND 18, 19)

REACTIONS (1)
  - Sepsis [Fatal]
